FAERS Safety Report 7947058-0 (Version None)
Quarter: 2011Q4

REPORT INFORMATION
  Report Type: 
  Country: None (occurrence: None)
  Receive Date: 20111129
  Receipt Date: 20110705
  Transmission Date: 20120403
  Serious: No
  Sender: FDA-Public Use
  Company Number: US-ASTRAZENECA-2011SE40462

PATIENT
  Sex: Female

DRUGS (2)
  1. VIMOVO [Suspect]
     Dosage: 500 MG/20 MG TWO TIMES A DAY
     Route: 048
  2. VIT D3 [Concomitant]

REACTIONS (5)
  - BACK PAIN [None]
  - PAIN IN EXTREMITY [None]
  - NECK PAIN [None]
  - FALL [None]
  - MUSCULOSKELETAL PAIN [None]
